FAERS Safety Report 18216689 (Version 3)
Quarter: 2020Q4

REPORT INFORMATION
  Report Type: Spontaneous
  Country: TW (occurrence: TW)
  Receive Date: 20200901
  Receipt Date: 20201105
  Transmission Date: 20210113
  Serious: Yes (Hospitalization, Other)
  Sender: FDA-Public Use
  Company Number: TW-AMGEN-TWNSP2020140807

PATIENT
  Age: 56 Year
  Sex: Female

DRUGS (1)
  1. ENBREL [Suspect]
     Active Substance: ETANERCEPT
     Indication: RHEUMATOID ARTHRITIS
     Dosage: 50 MILLIGRAM, QWK
     Route: 058
     Dates: start: 20150909, end: 20200716

REACTIONS (3)
  - Ligament disorder [Recovered/Resolved]
  - Gait disturbance [Recovered/Resolved]
  - Ankle deformity [Recovered/Resolved]
